FAERS Safety Report 4733904-0 (Version None)
Quarter: 2005Q3

REPORT INFORMATION
  Report Type: 
  Country: None (occurrence: None)
  Receive Date: 20050721
  Receipt Date: 20050512
  Transmission Date: 20060218
  Serious: No
  Sender: FDA-Public Use
  Company Number: 2005SP000736

PATIENT
  Age: 80 Year
  Sex: Male
  Weight: 63.05 kg

DRUGS (5)
  1. LUNESTA [Suspect]
     Dosage: 2 MG;HS;UNKNOWN
     Route: 065
     Dates: start: 20050510
  2. SINEMET [Concomitant]
  3. MUCINEX [Concomitant]
  4. ASPIRIN [Concomitant]
  5. ARICEPT [Concomitant]

REACTIONS (3)
  - DRUG INEFFECTIVE [None]
  - HALLUCINATION [None]
  - MIDDLE INSOMNIA [None]
